FAERS Safety Report 5046759-4 (Version None)
Quarter: 2006Q3

REPORT INFORMATION
  Report Type: 
  Country: None (occurrence: None)
  Receive Date: 20060705
  Receipt Date: 20060705
  Transmission Date: 20061208
  Serious: Yes (Hospitalization, Other)
  Sender: FDA-Public Use
  Company Number: None

PATIENT
  Age: 82 Year
  Sex: Male
  Weight: 81 kg

DRUGS (12)
  1. ROCEPHIN [Suspect]
     Indication: PNEUMONIA
     Dosage: 1 GRAM DAILY IM
     Route: 030
     Dates: start: 20060624, end: 20060628
  2. CALCITRIOL [Concomitant]
  3. DEPAKOTE [Concomitant]
  4. TUMS [Concomitant]
  5. APAP TAB [Concomitant]
  6. LEXAPRO [Concomitant]
  7. NAMENDA [Concomitant]
  8. ZANTAC [Concomitant]
  9. SALSALATE [Concomitant]
  10. PREDNISONE [Concomitant]
  11. SYNTHROID [Concomitant]
  12. EXELON [Concomitant]

REACTIONS (3)
  - CLOSTRIDIAL INFECTION [None]
  - FAECES DISCOLOURED [None]
  - STAPHYLOCOCCAL INFECTION [None]
